FAERS Safety Report 19472802 (Version 2)
Quarter: 2021Q3

REPORT INFORMATION
  Report Type: Spontaneous
  Country: US (occurrence: US)
  Receive Date: 20210629
  Receipt Date: 20210827
  Transmission Date: 20211014
  Serious: Yes (Hospitalization, Other)
  Sender: FDA-Public Use
  Company Number: US-INTRA-CELLULAR THERAPIES, INC.-2021ICT00287

PATIENT
  Age: 57 Year
  Sex: Female

DRUGS (7)
  1. PROGESTERONE. [Concomitant]
     Active Substance: PROGESTERONE
  2. GABAPENTIN. [Concomitant]
     Active Substance: GABAPENTIN
  3. TEGRETOL [Concomitant]
     Active Substance: CARBAMAZEPINE
  4. ESTRADIOL TRANSDERMAL SYSTEM [Concomitant]
     Active Substance: ESTRADIOL
  5. CLONAZEPAM. [Concomitant]
     Active Substance: CLONAZEPAM
  6. TOPAMAX [Concomitant]
     Active Substance: TOPIRAMATE
  7. CAPLYTA [Suspect]
     Active Substance: LUMATEPERONE
     Indication: MAJOR DEPRESSION
     Dosage: 42 MG, 1X/DAY AT BEDTIME
     Route: 048
     Dates: start: 20210521, end: 20210525

REACTIONS (7)
  - Seizure [Recovered/Resolved]
  - Foot fracture [Recovered/Resolved]
  - Head injury [Recovered/Resolved]
  - Off label use [Recovered/Resolved]
  - Orthostatic hypotension [Not Recovered/Not Resolved]
  - Fall [Recovered/Resolved]
  - Confusional state [Recovered/Resolved]

NARRATIVE: CASE EVENT DATE: 202105
